FAERS Safety Report 25852802 (Version 2)
Quarter: 2025Q4

REPORT INFORMATION
  Report Type: Spontaneous
  Country: CN (occurrence: CN)
  Receive Date: 20250926
  Receipt Date: 20251028
  Transmission Date: 20260117
  Serious: Yes (Hospitalization, Other)
  Sender: PFIZER
  Company Number: CN-PFIZER INC-PV202500113230

PATIENT
  Age: 39 Year
  Sex: Female
  Weight: 47 kg

DRUGS (6)
  1. METHYLPREDNISOLONE [Suspect]
     Active Substance: METHYLPREDNISOLONE
     Indication: Rheumatic disorder
     Dosage: UNK
     Dates: start: 2022
  2. DICLOFENAC SODIUM [Suspect]
     Active Substance: DICLOFENAC SODIUM
     Dosage: UNK
     Dates: start: 2022
  3. NORFLOXACIN [Suspect]
     Active Substance: NORFLOXACIN
     Indication: Diarrhoea
     Dosage: UNK
     Route: 048
     Dates: start: 2022
  4. OXYTETRACYCLINE [Suspect]
     Active Substance: OXYTETRACYCLINE
     Indication: Diarrhoea
     Dosage: UNK
     Route: 048
  5. TETRACYCLINE [Suspect]
     Active Substance: TETRACYCLINE
     Indication: Diarrhoea
     Dosage: UNK
     Route: 048
     Dates: start: 2022
  6. HERBALS [Suspect]
     Active Substance: HERBALS
     Indication: Diarrhoea
     Dosage: UNK
     Dates: start: 2022

REACTIONS (1)
  - Stevens-Johnson syndrome [Recovered/Resolved]

NARRATIVE: CASE EVENT DATE: 20220101
